FAERS Safety Report 4388115-8 (Version None)
Quarter: 2004Q2

REPORT INFORMATION
  Report Type: 
  Country: None (occurrence: None)
  Receive Date: 20040629
  Receipt Date: 20040629
  Transmission Date: 20050107
  Serious: Yes (Life-Threatening, Hospitalization)
  Sender: FDA-Public Use
  Company Number: None

PATIENT
  Age: 49 Year
  Sex: Female

DRUGS (7)
  1. LOVENOX [Suspect]
     Indication: DEEP VENOUS THROMBOSIS PROPHYLAXIS
     Dosage: 30 MG ONCE DAILY SUBCUTANEOUS
     Route: 058
     Dates: start: 20040220, end: 20040220
  2. DURICEF [Suspect]
     Indication: INFECTION PROPHYLAXIS
     Dosage: 500MG TWICE DAILY ORAL
     Route: 048
     Dates: start: 20040301, end: 20040301
  3. VICODIN [Concomitant]
  4. VALIUM [Concomitant]
  5. ACIPHEX [Concomitant]
  6. GLUCOPHAGE [Concomitant]
  7. DIOVAN [Concomitant]

REACTIONS (22)
  - ABDOMINAL PAIN [None]
  - ABDOMINAL WALL INFECTION [None]
  - ANAEMIA [None]
  - ANOREXIA [None]
  - BLOOD GLUCOSE INCREASED [None]
  - CELLULITIS [None]
  - CLOSTRIDIUM COLITIS [None]
  - HYPERHIDROSIS [None]
  - HYPOTENSION [None]
  - IMPAIRED HEALING [None]
  - NAUSEA [None]
  - PLATELET COUNT DECREASED [None]
  - POST PROCEDURAL HAEMATOMA [None]
  - POST PROCEDURAL HAEMORRHAGE [None]
  - PROTEUS INFECTION [None]
  - SEPSIS [None]
  - SURGICAL PROCEDURE REPEATED [None]
  - SYNCOPE [None]
  - VAGINAL CANDIDIASIS [None]
  - VOMITING [None]
  - WEIGHT DECREASED [None]
  - WOUND DEHISCENCE [None]
